FAERS Safety Report 11259066 (Version 1)
Quarter: 2015Q3

REPORT INFORMATION
  Report Type: Report from Study
  Country: ES (occurrence: ES)
  Receive Date: 20150710
  Receipt Date: 20150710
  Transmission Date: 20151125
  Serious: Yes (Hospitalization, Other)
  Sender: FDA-Public Use
  Company Number: ES-SHIRE-ES201507530

PATIENT
  Age: 13 Year
  Sex: Male

DRUGS (2)
  1. IDURSULFASE [Suspect]
     Active Substance: IDURSULFASE
     Indication: MUCOPOLYSACCHARIDOSIS II
     Dosage: 0.44 MG/KG, 1X/WEEK
     Route: 041
     Dates: start: 20120417
  2. IDURSULFASE [Suspect]
     Active Substance: IDURSULFASE
     Dosage: 0.69 MG/KG (ALTERNATING WITH 0.34 MG/KG), 1X/WEEK
     Route: 041
     Dates: start: 20061017

REACTIONS (1)
  - Device related infection [Recovered/Resolved]

NARRATIVE: CASE EVENT DATE: 20150225
